FAERS Safety Report 18433588 (Version 1)
Quarter: 2020Q4

REPORT INFORMATION
  Report Type: Spontaneous
  Country: DK (occurrence: DK)
  Receive Date: 20201027
  Receipt Date: 20201027
  Transmission Date: 20210114
  Serious: Yes (Other)
  Sender: FDA-Public Use
  Company Number: DK-BAUSCH-BL-2020-030848

PATIENT
  Age: 62 Year
  Sex: Female

DRUGS (5)
  1. METFORMIN [Concomitant]
     Active Substance: METFORMIN HYDROCHLORIDE
     Indication: PRODUCT USED FOR UNKNOWN INDICATION
  2. IMODIUM [Concomitant]
     Active Substance: LOPERAMIDE HYDROCHLORIDE
     Indication: PRODUCT USED FOR UNKNOWN INDICATION
  3. ZYCLARA [Suspect]
     Active Substance: IMIQUIMOD
     Dosage: ONE APPLICATION ON ENTIRE FACE
     Route: 061
     Dates: start: 20201012
  4. ZYCLARA [Suspect]
     Active Substance: IMIQUIMOD
     Indication: ACTINIC KERATOSIS
     Dosage: ONE APPLICATION ON ENTIRE FACE
     Route: 061
     Dates: start: 20200914, end: 20200927
  5. TRULICITY [Concomitant]
     Active Substance: DULAGLUTIDE
     Indication: PRODUCT USED FOR UNKNOWN INDICATION

REACTIONS (7)
  - Musculoskeletal pain [Not Recovered/Not Resolved]
  - Skin wound [Unknown]
  - Skin exfoliation [Unknown]
  - Diarrhoea [Not Recovered/Not Resolved]
  - Fatigue [Unknown]
  - Decreased appetite [Unknown]
  - Application site discolouration [Unknown]

NARRATIVE: CASE EVENT DATE: 20200924
